FAERS Safety Report 23508632 (Version 1)
Quarter: 2024Q1

REPORT INFORMATION
  Report Type: Spontaneous
  Country: FR (occurrence: FR)
  Receive Date: 20240209
  Receipt Date: 20240209
  Transmission Date: 20240410
  Serious: Yes (Hospitalization, Other)
  Sender: FDA-Public Use
  Company Number: None

PATIENT
  Age: 24 Year
  Sex: Female

DRUGS (1)
  1. TRAMADOL HYDROCHLORIDE [Suspect]
     Active Substance: TRAMADOL HYDROCHLORIDE
     Dosage: 500MG/DAY
     Route: 048
     Dates: start: 2020, end: 20220504

REACTIONS (2)
  - Drug dependence [Recovering/Resolving]
  - Drug detoxification [Recovered/Resolved]

NARRATIVE: CASE EVENT DATE: 20200101
